FAERS Safety Report 17120418 (Version 2)
Quarter: 2019Q4

REPORT INFORMATION
  Report Type: Spontaneous
  Country: ES (occurrence: ES)
  Receive Date: 20191206
  Receipt Date: 20191230
  Transmission Date: 20200122
  Serious: Yes (Other)
  Sender: FDA-Public Use
  Company Number: ES-ABBVIE-19K-144-3179427-00

PATIENT
  Age: 47 Year
  Sex: Female
  Weight: 68.5 kg

DRUGS (2)
  1. HUMIRA [Suspect]
     Active Substance: ADALIMUMAB
     Indication: HIDRADENITIS
     Route: 058
     Dates: start: 20160426
  2. ACFOL [Concomitant]
     Active Substance: FOLIC ACID
     Indication: FOLATE DEFICIENCY
     Route: 048
     Dates: start: 20190910

REACTIONS (5)
  - Folate deficiency [Unknown]
  - Squamous cell carcinoma [Recovered/Resolved with Sequelae]
  - Squamous cell carcinoma [Recovered/Resolved with Sequelae]
  - Immunosuppression [Unknown]
  - Skin lesion [Unknown]

NARRATIVE: CASE EVENT DATE: 20190928
